FAERS Safety Report 11264601 (Version 1)
Quarter: 2015Q3

REPORT INFORMATION
  Report Type: Report from Study
  Country: CA (occurrence: CA)
  Receive Date: 20150713
  Receipt Date: 20150713
  Transmission Date: 20151125
  Serious: Yes (Other)
  Sender: FDA-Public Use
  Company Number: CA-ABBVIE-15K-028-1423238-00

PATIENT
  Sex: Male

DRUGS (1)
  1. HUMIRA [Suspect]
     Active Substance: ADALIMUMAB
     Indication: PSORIATIC ARTHROPATHY
     Route: 058
     Dates: start: 20120216, end: 201412

REACTIONS (4)
  - Accident at work [Unknown]
  - Skin mass [Unknown]
  - Muscle injury [Unknown]
  - Neck injury [Unknown]

NARRATIVE: CASE EVENT DATE: 2014
